FAERS Safety Report 7772889-X (Version None)
Quarter: 2011Q3

REPORT INFORMATION
  Report Type: 
  Country: None (occurrence: None)
  Receive Date: 20110922
  Receipt Date: 20110913
  Transmission Date: 20111222
  Serious: Yes (Hospitalization)
  Sender: FDA-Public Use
  Company Number: US-ASTRAZENECA-2011SE52642

PATIENT
  Sex: Male

DRUGS (2)
  1. OVER THE COUNTER MEDICATION [Concomitant]
  2. NEXIUM [Suspect]
     Route: 048

REACTIONS (2)
  - ABDOMINAL DISCOMFORT [None]
  - DRUG DOSE OMISSION [None]
